FAERS Safety Report 4433519-8 (Version None)
Quarter: 2004Q3

REPORT INFORMATION
  Report Type: 
  Country: None (occurrence: None)
  Receive Date: 20040824
  Receipt Date: 20040824
  Transmission Date: 20050211
  Serious: Yes (Hospitalization)
  Sender: FDA-Public Use
  Company Number: None

PATIENT
  Sex: Female
  Weight: 54.8852 kg

DRUGS (2)
  1. GEMZAR [Suspect]
     Indication: PANCREATIC CARCINOMA
     Dosage: 650 MG/M2 IV
     Route: 042
  2. CELEBREX [Suspect]
     Indication: PANCREATIC CARCINOMA
     Dosage: 460 MG BD PO
     Route: 048

REACTIONS (3)
  - ABDOMINAL PAIN [None]
  - ASTHENIA [None]
  - CONSTIPATION [None]
